FAERS Safety Report 6731805-X (Version None)
Quarter: 2010Q2

REPORT INFORMATION
  Report Type: 
  Country: None (occurrence: None)
  Receive Date: 20100519
  Receipt Date: 20100510
  Transmission Date: 20101027
  Serious: Yes (Life-Threatening)
  Sender: FDA-Public Use
  Company Number: IT-PFIZER INC-2010032869

PATIENT
  Age: 51 Year
  Sex: Male

DRUGS (1)
  1. ZITHROMAX [Suspect]
     Dosage: 1000 MG, 1X/DAY
     Route: 042
     Dates: start: 20090421, end: 20090422

REACTIONS (2)
  - ACUTE RESPIRATORY FAILURE [None]
  - ASTHMATIC CRISIS [None]
